FAERS Safety Report 8179034-X (Version None)
Quarter: 2012Q1

REPORT INFORMATION
  Report Type: 
  Country: None (occurrence: None)
  Receive Date: 20120302
  Receipt Date: 20120227
  Transmission Date: 20120608
  Serious: Yes (Hospitalization)
  Sender: FDA-Public Use
  Company Number: DE-ROCHE-693824

PATIENT
  Sex: Male
  Weight: 83 kg

DRUGS (9)
  1. PANTOPRAZOLE [Concomitant]
     Dates: start: 20100520
  2. SPIRONOLACTONE [Concomitant]
     Dates: start: 20120125
  3. PEGINTERFERON ALFA-2A [Suspect]
     Indication: HEPATITIS VIRAL
     Route: 058
  4. TENOFOVIR DISOPROXIL FUMARATE [Suspect]
     Indication: HEPATITIS VIRAL
     Dosage: DOSE BLINDED
     Route: 048
  5. PANTOPRAZOLE [Concomitant]
     Dates: start: 20060101
  6. MILK THISTLE [Concomitant]
     Dates: start: 20050101
  7. SAB SIMPLEX [Concomitant]
     Dates: start: 20120125
  8. DOCITON [Concomitant]
  9. DOCITON [Concomitant]

REACTIONS (7)
  - GASTROINTESTINAL HAEMORRHAGE [None]
  - GASTRITIS [None]
  - NO THERAPEUTIC RESPONSE [None]
  - PORTAL HYPERTENSIVE GASTROPATHY [None]
  - ANAL ULCER [None]
  - VARICES OESOPHAGEAL [None]
  - ASCITES [None]
